FAERS Safety Report 12187563 (Version 1)
Quarter: 2016Q1

REPORT INFORMATION
  Report Type: Spontaneous
  Country: US (occurrence: None)
  Receive Date: 20160316
  Receipt Date: 20160316
  Transmission Date: 20160526
  Serious: Yes (Other)
  Sender: FDA-Public Use
  Company Number: None

PATIENT
  Age: 26 Year
  Sex: Female
  Weight: 58.97 kg

DRUGS (6)
  1. OCELLA (BIRTH CONTROL) [Concomitant]
  2. DIAZEPAM. [Concomitant]
     Active Substance: DIAZEPAM
  3. MULTI VITAMIN [Concomitant]
     Active Substance: VITAMINS
  4. EXCITALOPRAM OXALATE [Suspect]
     Active Substance: ESCITALOPRAM OXALATE
     Indication: ANXIETY
     Route: 048
     Dates: start: 20160301, end: 20160315
  5. FISH OIL [Concomitant]
     Active Substance: FISH OIL
  6. LEXAPRO [Concomitant]
     Active Substance: ESCITALOPRAM OXALATE

REACTIONS (5)
  - Product substitution issue [None]
  - Dyspnoea [None]
  - Crying [None]
  - Panic attack [None]
  - Madarosis [None]

NARRATIVE: CASE EVENT DATE: 20160315
